FAERS Safety Report 10302096 (Version 1)
Quarter: 2014Q3

REPORT INFORMATION
  Report Type: Spontaneous
  Country: US (occurrence: None)
  Receive Date: 20140710
  Receipt Date: 20140710
  Transmission Date: 20150326
  Serious: Yes (Other)
  Sender: FDA-Public Use
  Company Number: None

PATIENT
  Age: 80 Year
  Sex: Female
  Weight: 45.36 kg

DRUGS (12)
  1. AMLODIPINE BESYLATE AND BENAZEPRIL HCL [Suspect]
     Active Substance: AMLODIPINE BESYLATE\BENAZEPRIL HYDROCHLORIDE
     Indication: HYPERTENSION
     Dosage: 30 CAPSULES, ONCE A DAY, BY MOUTH
     Route: 048
     Dates: start: 20140522, end: 20140613
  2. LANSOPRAZOLE  DR [Concomitant]
  3. VIT. D, FOLIC ACID, VIT. B - COMPLEX [Concomitant]
     Active Substance: FOLIC ACID\VITAMINS
  4. FLUOCINONIDE OINTMENT [Concomitant]
  5. VIT. B12 [Concomitant]
  6. CELEBREX [Concomitant]
     Active Substance: CELECOXIB
  7. CITRACAL [Concomitant]
     Active Substance: CALCIUM CITRATE
  8. RANITIDINE [Concomitant]
     Active Substance: RANITIDINE\RANITIDINE HYDROCHLORIDE
  9. OSTEO-BI-FLEX [Concomitant]
  10. VIT. C [Concomitant]
  11. HYDROCORTISONE OINTMENT + CREAM [Concomitant]
  12. OCUVITE W/LUTEIN [Concomitant]

REACTIONS (6)
  - Fatigue [None]
  - Dyspnoea [None]
  - Product substitution issue [None]
  - Movement disorder [None]
  - Migraine [None]
  - Feeling abnormal [None]

NARRATIVE: CASE EVENT DATE: 20140612
